FAERS Safety Report 19811255 (Version 1)
Quarter: 2021Q3

REPORT INFORMATION
  Report Type: Spontaneous
  Country: US (occurrence: US)
  Receive Date: 20210910
  Receipt Date: 20210910
  Transmission Date: 20211014
  Serious: Yes (Death, Hospitalization, Other)
  Sender: FDA-Public Use
  Company Number: US-AMGEN-USASP2021137069

PATIENT
  Age: 58 Year
  Sex: Male

DRUGS (8)
  1. FILGRASTIM [Suspect]
     Active Substance: FILGRASTIM
     Indication: LEUKAEMIA RECURRENT
     Dosage: UNK
     Route: 065
  2. VORICONAZOLE. [Concomitant]
     Active Substance: VORICONAZOLE
     Indication: PROPHYLAXIS
     Dosage: UNK
  3. ISAVUCONAZONIUM [Concomitant]
     Active Substance: ISAVUCONAZONIUM
     Indication: PROPHYLAXIS
     Dosage: UNK
  4. CYTARABINE. [Concomitant]
     Active Substance: CYTARABINE
     Indication: LEUKAEMIA RECURRENT
     Dosage: UNK
  5. MITOXANTRONE [Concomitant]
     Active Substance: MITOXANTRONE HYDROCHLORIDE
     Indication: LEUKAEMIA RECURRENT
     Dosage: UNK
  6. AMPHOTERICIN B. [Concomitant]
     Active Substance: AMPHOTERICIN B
     Indication: PROPHYLAXIS
     Dosage: UNK
  7. ACYCLOVIR [ACICLOVIR] [Concomitant]
     Active Substance: ACYCLOVIR
     Dosage: UNK
  8. CIPROFLOXACIN. [Concomitant]
     Active Substance: CIPROFLOXACIN
     Indication: PROPHYLAXIS
     Dosage: UNK

REACTIONS (4)
  - Platelet count decreased [Unknown]
  - Death [Fatal]
  - Haemoglobin decreased [Unknown]
  - Bronchopulmonary aspergillosis [Unknown]
